FAERS Safety Report 8967614 (Version 1)
Quarter: 2012Q4

REPORT INFORMATION
  Report Type: 
  Country: US (occurrence: US)
  Receive Date: 20121217
  Receipt Date: 20121217
  Transmission Date: 20130627
  Serious: Yes (Other)
  Sender: FDA-Public Use
  Company Number: US-TEVA-362219USA

PATIENT
  Age: 42 Year
  Sex: Male

DRUGS (1)
  1. LEVETIRACETAM [Suspect]
     Dosage: 1500 Milligram Daily; XR
     Dates: start: 20120831

REACTIONS (1)
  - Grand mal convulsion [Unknown]
